FAERS Safety Report 7883779-6 (Version None)
Quarter: 2011Q4

REPORT INFORMATION
  Report Type: 
  Country: None (occurrence: None)
  Receive Date: 20111031
  Receipt Date: 20111017
  Transmission Date: 20120403
  Serious: Yes (Other)
  Sender: FDA-Public Use
  Company Number: FR-ACCORD-011110

PATIENT
  Age: 59 Year
  Sex: Male

DRUGS (2)
  1. OXALIPLATIN [Suspect]
     Indication: THYROID CANCER
     Dosage: 100.00-MG/M2-2.0 / WEEKS
  2. GEMCITABINE [Suspect]
     Indication: THYROID CANCER
     Dosage: 1000.00-MGM2-2.0  / WEEKS

REACTIONS (3)
  - ANAEMIA [None]
  - TOXICITY TO VARIOUS AGENTS [None]
  - OFF LABEL USE [None]
